FAERS Safety Report 12834588 (Version 2)
Quarter: 2017Q1

REPORT INFORMATION
  Report Type: Spontaneous
  Country: US (occurrence: US)
  Receive Date: 20161010
  Receipt Date: 20170222
  Transmission Date: 20170428
  Serious: Yes (Death)
  Sender: FDA-Public Use
  Company Number: US-PFIZER INC-2016402703

PATIENT
  Age: 77 Year
  Sex: Male
  Weight: 101 kg

DRUGS (1)
  1. XALKORI [Suspect]
     Active Substance: CRIZOTINIB
     Indication: LUNG CANCER METASTATIC
     Dosage: 250 MG, 1X/DAY
     Route: 048
     Dates: start: 201608, end: 201609

REACTIONS (2)
  - Product use issue [Unknown]
  - Cardiac failure [Fatal]
